FAERS Safety Report 5091507-5 (Version None)
Quarter: 2006Q3

REPORT INFORMATION
  Report Type: 
  Country: None (occurrence: None)
  Receive Date: 20060727
  Receipt Date: 20060416
  Transmission Date: 20061208
  Serious: Yes (Other)
  Sender: FDA-Public Use
  Company Number: 2006051878

PATIENT
  Age: 68 Year
  Sex: Female
  Weight: 95.2554 kg

DRUGS (13)
  1. LYRICA [Suspect]
     Indication: NEUROPATHY
     Dosage: 75 MG (75 MG,1 IN 1 D),ORAL
     Route: 048
     Dates: start: 20060413
  2. HUMALOG [Concomitant]
  3. CLONAZEPAM [Concomitant]
  4. ACTOS [Concomitant]
  5. SYNTHROID [Concomitant]
  6. HYDROCHLOROTHIAZIDE [Concomitant]
  7. DOXEPIN HCL [Concomitant]
  8. TIZANIDINE HCL [Concomitant]
  9. CLONIDINE [Concomitant]
  10. FOLIC ACID [Concomitant]
  11. ULTRACET [Concomitant]
  12. HYZAAR [Concomitant]
  13. MORPHINE SULFATE [Concomitant]

REACTIONS (2)
  - HYPERSOMNIA [None]
  - SOMNOLENCE [None]
